FAERS Safety Report 13983368 (Version 2)
Quarter: 2017Q4

REPORT INFORMATION
  Report Type: Spontaneous
  Country: FR (occurrence: FR)
  Receive Date: 20170918
  Receipt Date: 20171121
  Transmission Date: 20180321
  Serious: Yes (Other)
  Sender: FDA-Public Use
  Company Number: FR-BAYER-2017-174352

PATIENT
  Age: 24 Year
  Sex: Female
  Weight: 65 kg

DRUGS (2)
  1. JAYDESS [Suspect]
     Active Substance: LEVONORGESTREL
     Dosage: 14 MCG/24HR, CONT
     Route: 015
     Dates: start: 20170707, end: 20170822
  2. YAZ [Suspect]
     Active Substance: DROSPIRENONE\ETHINYL ESTRADIOL
     Route: 048

REACTIONS (5)
  - Vulvovaginal pain [Unknown]
  - Dyspareunia [Unknown]
  - Migraine [Unknown]
  - Device use issue [Unknown]
  - Uterine perforation [Unknown]

NARRATIVE: CASE EVENT DATE: 20170707
